FAERS Safety Report 9721341 (Version 1)
Quarter: 2013Q4

REPORT INFORMATION
  Report Type: Spontaneous
  Country: US (occurrence: US)
  Receive Date: 20131129
  Receipt Date: 20131129
  Transmission Date: 20140711
  Serious: No
  Sender: FDA-Public Use
  Company Number: US-PFIZER INC-2013339657

PATIENT
  Age: 52 Year
  Sex: Male
  Weight: 73.47 kg

DRUGS (2)
  1. VIAGRA [Suspect]
     Indication: ERECTILE DYSFUNCTION
     Dosage: 100 MG, AS NEEDED
  2. CYPROHEPTADINE [Concomitant]
     Indication: APPETITE DISORDER
     Dosage: 2 DF, DAILY

REACTIONS (1)
  - Drug ineffective [Unknown]
